FAERS Safety Report 6956929-3 (Version None)
Quarter: 2010Q3

REPORT INFORMATION
  Report Type: 
  Country: None (occurrence: None)
  Receive Date: 20100830
  Receipt Date: 20100820
  Transmission Date: 20110219
  Serious: Yes (Death)
  Sender: FDA-Public Use
  Company Number: NL-AMGEN-QUU434097

PATIENT
  Age: 65 Year
  Sex: Female

DRUGS (1)
  1. ENBREL [Suspect]
     Indication: PRODUCT USED FOR UNKNOWN INDICATION
     Dosage: UNKNOWN
     Dates: start: 20100426, end: 20100701

REACTIONS (3)
  - ADENOCARCINOMA [None]
  - METASTATIC NEOPLASM [None]
  - PANCREATIC CARCINOMA METASTATIC [None]
